FAERS Safety Report 7210832-2 (Version None)
Quarter: 2011Q1

REPORT INFORMATION
  Report Type: 
  Country: None (occurrence: None)
  Receive Date: 20110105
  Receipt Date: 20101217
  Transmission Date: 20110831
  Serious: Yes (Hospitalization)
  Sender: FDA-Public Use
  Company Number: PHHO2010US17202

PATIENT
  Sex: Female
  Weight: 78.005 kg

DRUGS (3)
  1. FTY 720 [Suspect]
     Dosage: 0.5 MG, QD
     Route: 048
     Dates: start: 20091215
  2. FLONASE [Concomitant]
     Indication: SEASONAL ALLERGY
  3. FTY 720 [Suspect]
     Indication: MULTIPLE SCLEROSIS
     Dosage: DOUBLE BLIND
     Route: 048
     Dates: start: 20090820, end: 20091214

REACTIONS (6)
  - BRONCHITIS [None]
  - PYREXIA [None]
  - CHILLS [None]
  - COUGH [None]
  - EXOSTOSIS [None]
  - DEHYDRATION [None]
